FAERS Safety Report 4500854-4 (Version None)
Quarter: 2004Q4

REPORT INFORMATION
  Report Type: 
  Country: None (occurrence: None)
  Receive Date: 20041115
  Receipt Date: 20041105
  Transmission Date: 20050328
  Serious: Yes (Other)
  Sender: FDA-Public Use
  Company Number: PHNU2004SI03803

PATIENT
  Age: 62 Year
  Sex: Female
  Weight: 62 kg

DRUGS (4)
  1. LOCOL [Suspect]
     Dosage: 80 MG, QD
     Route: 048
     Dates: start: 20040717, end: 20040724
  2. INSULIN [Concomitant]
     Indication: DIABETES MELLITUS INSULIN-DEPENDENT
  3. ENALAPRIL [Concomitant]
     Indication: HYPERTENSION
     Dosage: 20 MG, BID
     Route: 048
  4. ASPIRIN [Concomitant]
     Dosage: 100 MG DAILY
     Route: 048

REACTIONS (3)
  - ASTHMA [None]
  - NAUSEA [None]
  - VOMITING [None]
